FAERS Safety Report 19966742 (Version 1)
Quarter: 2021Q4

REPORT INFORMATION
  Report Type: Spontaneous
  Country: BR (occurrence: BR)
  Receive Date: 20211019
  Receipt Date: 20211019
  Transmission Date: 20220303
  Serious: Yes (Other)
  Sender: FDA-Public Use
  Company Number: BR-NOVOPROD-856200

PATIENT
  Age: 10 Year
  Sex: Female
  Weight: 29.5 kg

DRUGS (2)
  1. NOVORAPID [Suspect]
     Active Substance: INSULIN ASPART
     Indication: Diabetes mellitus
     Dosage: ~25U ASPART/D ACCORDING TO CHO COUNT 13 (LUNCH) AND 15 (DINNER AND SUPPER)
     Route: 065
  2. LEVEMIR [Suspect]
     Active Substance: INSULIN DETEMIR
     Indication: Diabetes mellitus
     Dosage: 13 IU, QD (10U IN THE MORNING AND 3U AT NIGHT)
     Route: 065

REACTIONS (2)
  - Hyperglycaemic seizure [Unknown]
  - Hyperglycaemia [Unknown]
